FAERS Safety Report 20822373 (Version 1)
Quarter: 2022Q2

REPORT INFORMATION
  Report Type: Report from Study
  Country: US (occurrence: US)
  Receive Date: 20220512
  Receipt Date: 20220512
  Transmission Date: 20220720
  Serious: Yes (Life-Threatening, Hospitalization)
  Sender: FDA-Public Use
  Company Number: US-MYLANLABS-2022M1035018

PATIENT
  Age: 51 Year
  Sex: Male

DRUGS (1)
  1. HEPARIN [Suspect]
     Active Substance: HEPARIN SODIUM
     Indication: Thrombosis prophylaxis
     Dosage: CONTINUOUS HEPARIN INFUSION
     Route: 065

REACTIONS (2)
  - Thrombocytopenia [Recovered/Resolved]
  - Embolism [Unknown]
